FAERS Safety Report 15387572 (Version 19)
Quarter: 2019Q1

REPORT INFORMATION
  Report Type: Spontaneous
  Country: US (occurrence: US)
  Receive Date: 20180914
  Receipt Date: 20190129
  Transmission Date: 20190417
  Serious: Yes (Death, Hospitalization)
  Sender: FDA-Public Use
  Company Number: US-ACTELION-A-US2018-178552

PATIENT
  Age: 58 Year
  Sex: Male
  Weight: 130.61 kg

DRUGS (10)
  1. SILDENAFIL. [Concomitant]
     Active Substance: SILDENAFIL
     Dosage: 20 MG, TID
     Route: 048
     Dates: start: 20180803
  2. VELETRI [Suspect]
     Active Substance: EPOPROSTENOL
     Dosage: 15 NG/KG, PER MIN
     Route: 042
  3. METOPROLOL. [Concomitant]
     Active Substance: METOPROLOL
     Dosage: 100 MG, BID
  4. VELETRI [Suspect]
     Active Substance: EPOPROSTENOL
     Dosage: 7 NG/KG, PER MIN
     Route: 042
     Dates: start: 20180803
  5. VELETRI [Suspect]
     Active Substance: EPOPROSTENOL
     Indication: PULMONARY ARTERIAL HYPERTENSION
     Dosage: 13 NG/KG, PER MIN
     Route: 042
     Dates: end: 20190108
  6. SILDENAFIL. [Concomitant]
     Active Substance: SILDENAFIL
     Dosage: 60 MG, TID
  7. AMBRISENTAN [Concomitant]
     Active Substance: AMBRISENTAN
     Dosage: UNK
     Dates: start: 20180807, end: 20180815
  8. OPSUMIT [Suspect]
     Active Substance: MACITENTAN
     Indication: PULMONARY ARTERIAL HYPERTENSION
     Dosage: 10 MG, QD
     Route: 048
     Dates: start: 20180803, end: 20190102
  9. AMLODIPINE [Concomitant]
     Active Substance: AMLODIPINE BESYLATE
     Dosage: 10 MG, QD
  10. TORSEMIDE. [Concomitant]
     Active Substance: TORSEMIDE
     Dosage: 100 MG, BID

REACTIONS (28)
  - Abdominal pain upper [Unknown]
  - Oedema peripheral [Unknown]
  - Condition aggravated [Unknown]
  - Right ventricular failure [Fatal]
  - Fluid retention [Unknown]
  - Brain natriuretic peptide increased [Unknown]
  - Fall [Unknown]
  - Localised oedema [Unknown]
  - Chills [Unknown]
  - Respiratory failure [Unknown]
  - Disease progression [Fatal]
  - Pulmonary hypertension [Fatal]
  - Peptic ulcer [Recovering/Resolving]
  - Hypoxia [Unknown]
  - Pleural effusion [Unknown]
  - Fluid overload [Unknown]
  - Gastrointestinal viral infection [Recovering/Resolving]
  - Cough [Recovered/Resolved]
  - Abdominal discomfort [Unknown]
  - Secretion discharge [Unknown]
  - Lung disorder [Unknown]
  - Diarrhoea [Not Recovered/Not Resolved]
  - Dyspnoea [Unknown]
  - Pain [Unknown]
  - Hallucination [Recovered/Resolved]
  - Vascular occlusion [Unknown]
  - Weight increased [Unknown]
  - Hepatic enzyme abnormal [Unknown]

NARRATIVE: CASE EVENT DATE: 20181203
